FAERS Safety Report 8821989 (Version 2)
Quarter: 2013Q1

REPORT INFORMATION
  Report Type: Spontaneous
  Country: US (occurrence: US)
  Receive Date: 20121003
  Receipt Date: 20130318
  Transmission Date: 20140127
  Serious: No
  Sender: FDA-Public Use
  Company Number: US-BIOGENIDEC-2012BI041712

PATIENT
  Sex: Male

DRUGS (2)
  1. AVONEX [Concomitant]
     Indication: MULTIPLE SCLEROSIS
     Route: 030
     Dates: start: 20120417
  2. TYSABRI [Suspect]
     Indication: MULTIPLE SCLEROSIS
     Route: 042
     Dates: start: 20120830

REACTIONS (5)
  - Visual acuity reduced [Not Recovered/Not Resolved]
  - Fall [Recovered/Resolved]
  - Loss of control of legs [Not Recovered/Not Resolved]
  - Mobility decreased [Recovered/Resolved]
  - Drug effect decreased [Not Recovered/Not Resolved]
